FAERS Safety Report 20878649 (Version 2)
Quarter: 2022Q2

REPORT INFORMATION
  Report Type: Spontaneous
  Country: US (occurrence: None)
  Receive Date: 20220526
  Receipt Date: 20220615
  Transmission Date: 20220721
  Serious: No
  Sender: FDA-Public Use
  Company Number: 2022A187882

PATIENT
  Age: 78 Year

DRUGS (1)
  1. BUDESONIDE\FORMOTEROL\GLYCOPYRRONIUM [Suspect]
     Active Substance: BUDESONIDE\FORMOTEROL\GLYCOPYRRONIUM
     Indication: Emphysema
     Dosage: BREZTRI 160MCG/9MCG/4.8MCG AS 2 PUFFS TWICE A DAY
     Route: 055
     Dates: start: 2021

REACTIONS (6)
  - Arthritis [Not Recovered/Not Resolved]
  - Aphonia [Not Recovered/Not Resolved]
  - Wrong technique in product usage process [Unknown]
  - Intentional device use issue [Unknown]
  - Device delivery system issue [Unknown]
  - Product dose omission in error [Unknown]

NARRATIVE: CASE EVENT DATE: 20210101
